FAERS Safety Report 10430759 (Version 1)
Quarter: 2014Q3

REPORT INFORMATION
  Report Type: Spontaneous
  Country: US (occurrence: US)
  Receive Date: 20140904
  Receipt Date: 20140904
  Transmission Date: 20150326
  Serious: Yes (Death, Other)
  Sender: FDA-Public Use
  Company Number: PHHY2014US107683

PATIENT
  Age: 28 Year
  Sex: Female

DRUGS (2)
  1. TRAZODONE [Suspect]
     Active Substance: TRAZODONE HYDROCHLORIDE
     Dosage: 1000 MG, UNK
  2. VERAPAMIL [Suspect]
     Active Substance: VERAPAMIL HYDROCHLORIDE
     Dosage: 2000 MG, UNK

REACTIONS (9)
  - Hypoxia [Unknown]
  - Overdose [Fatal]
  - Respiratory failure [Unknown]
  - Shock [Unknown]
  - Hypotension [Unknown]
  - Pulseless electrical activity [Fatal]
  - Toxicity to various agents [Fatal]
  - Vasoplegia syndrome [Unknown]
  - Cardiogenic shock [Unknown]
